FAERS Safety Report 7691629-6 (Version None)
Quarter: 2011Q3

REPORT INFORMATION
  Report Type: 
  Country: None (occurrence: None)
  Receive Date: 20110818
  Receipt Date: 20110808
  Transmission Date: 20111222
  Serious: Yes (Other)
  Sender: FDA-Public Use
  Company Number: JP-BRISTOL-MYERS SQUIBB COMPANY-15971161

PATIENT
  Age: 68 Year
  Sex: Male

DRUGS (13)
  1. PROPERICIAZINE [Concomitant]
  2. VEGETAMIN A [Concomitant]
     Dosage: TAB
  3. ZOTEPINE [Concomitant]
  4. CHLORPROMAZINE HCL [Concomitant]
  5. PERPHENAZINE [Concomitant]
  6. RISPERIDONE [Concomitant]
  7. SULPIRIDE [Concomitant]
  8. OLANZAPINE [Concomitant]
  9. PHENOBARBITAL TAB [Concomitant]
     Dosage: TAB
  10. HALOPERIDOL [Concomitant]
  11. ABILIFY [Suspect]
     Indication: SCHIZOPHRENIA, CATATONIC TYPE
     Route: 048
  12. LEVOMEPROMAZINE MALEATE [Concomitant]
  13. PEROSPIRONE [Concomitant]
     Dosage: PEROSPIRONE HCL HYDRATE TAB

REACTIONS (7)
  - DYSPHAGIA [None]
  - PNEUMONIA [None]
  - THIRST [None]
  - URINARY RETENTION [None]
  - ILEUS PARALYTIC [None]
  - GAZE PALSY [None]
  - CONSTIPATION [None]
